FAERS Safety Report 8065263-2 (Version None)
Quarter: 2011Q4

REPORT INFORMATION
  Report Type: 
  Country: None (occurrence: None)
  Receive Date: 20111221
  Receipt Date: 20110422
  Transmission Date: 20120403
  Serious: Yes (Hospitalization)
  Sender: FDA-Public Use
  Company Number: PHHY2011US34794

PATIENT
  Age: 54 Year
  Sex: Male
  Weight: 75 kg

DRUGS (5)
  1. EXJADE [Suspect]
     Indication: IRON OVERLOAD
     Dosage: 1500 MG, ORAL
     Route: 048
     Dates: start: 20090101
  2. TRILEPTAL [Concomitant]
  3. PERCODAN (ACETYLSALICYLIC ACID, CAFFEINE, HOMATROPINE TEREPHATHALATE, [Concomitant]
  4. BLOOD TRANSFUSION, AUXILIAR PRODUCTS (NO INGREDIENTS/SUBSTANCES) [Concomitant]
  5. PHENOBARBITAL TAB [Concomitant]

REACTIONS (1)
  - SICKLE CELL ANAEMIA [None]
